FAERS Safety Report 11647814 (Version 1)
Quarter: 2015Q4

REPORT INFORMATION
  Report Type: Spontaneous
  Country: US (occurrence: None)
  Receive Date: 20151020
  Receipt Date: 20151020
  Transmission Date: 20160304
  Serious: Yes (Hospitalization)
  Sender: FDA-Public Use
  Company Number: None

PATIENT
  Age: 55 Year
  Sex: Male
  Weight: 78.6 kg

DRUGS (1)
  1. METOPROLOL [Suspect]
     Active Substance: METOPROLOL
     Indication: CARDIAC FAILURE CONGESTIVE
     Route: 048
     Dates: start: 20150625, end: 20150627

REACTIONS (7)
  - Nausea [None]
  - Fatigue [None]
  - Peripheral coldness [None]
  - Vomiting [None]
  - Abdominal pain upper [None]
  - Cardiogenic shock [None]
  - Dyspnoea [None]

NARRATIVE: CASE EVENT DATE: 20150627
